FAERS Safety Report 21366538 (Version 1)
Quarter: 2022Q3

REPORT INFORMATION
  Report Type: Spontaneous
  Country: EG (occurrence: EG)
  Receive Date: 20220923
  Receipt Date: 20220923
  Transmission Date: 20221027
  Serious: Yes (Disabling, Other)
  Sender: FDA-Public Use
  Company Number: EG-NOVOPROD-958797

PATIENT
  Age: 802 Month
  Sex: Female

DRUGS (10)
  1. DEPOVIT B12 [Concomitant]
     Indication: Nerve degeneration
     Dosage: UNK, 2 INJECTIONS/WEEK
     Route: 030
  2. CALCIUM DOBESILATE [Concomitant]
     Active Substance: CALCIUM DOBESILATE
     Indication: Eye disorder
     Dosage: UNK, 2 TAB./DAY
     Route: 048
     Dates: start: 2019
  3. NEUROBION [CYANOCOBALAMIN;PYRIDOXINE HYDROCHLORIDE;THIAMINE MONONITRAT [Concomitant]
     Indication: Nerve degeneration
     Dosage: UNK, 2 TAB. AT ONCE DAILY
     Route: 048
  4. DOCONEXENT\ICOSAPENT [Concomitant]
     Active Substance: DOCONEXENT\ICOSAPENT
     Indication: Supplementation therapy
     Dosage: UNK, 1 CAP.DAY
     Route: 048
  5. SELENIUM [Concomitant]
     Active Substance: SELENIUM
     Indication: Vitamin supplementation
     Dosage: 1 TAB./DAY
     Route: 048
  6. GLUCOPHAGE [Concomitant]
     Active Substance: METFORMIN HYDROCHLORIDE
     Indication: Type 2 diabetes mellitus
     Dosage: 1000 MG, 2 TAB3/DAY
     Route: 048
  7. INSULIN HUMAN [Suspect]
     Active Substance: INSULIN HUMAN
     Dosage: 25 IU/MORN AND 10-15 IU/ NIGHT
     Route: 058
  8. INSULIN HUMAN [Suspect]
     Active Substance: INSULIN HUMAN
     Indication: Type 2 diabetes mellitus
     Dosage: 60 IU, QD (40 IU/MORN - 20 IU/NIGHT )
     Route: 058
     Dates: start: 2009
  9. HYDROCHLOROTHIAZIDE\IRBESARTAN [Concomitant]
     Active Substance: HYDROCHLOROTHIAZIDE\IRBESARTAN
     Indication: Hypertension
     Dosage: 300/25 MG, 1 TAB./DAY
     Route: 048
  10. HYDROCHLOROTHIAZIDE\IRBESARTAN [Concomitant]
     Active Substance: HYDROCHLOROTHIAZIDE\IRBESARTAN
     Dosage: 150/12.5 MG, 1 TAB./DAY
     Route: 048

REACTIONS (4)
  - Eye haemorrhage [Unknown]
  - Post procedural haemorrhage [Unknown]
  - Retinal fibrosis [Not Recovered/Not Resolved]
  - Diabetes mellitus inadequate control [Unknown]

NARRATIVE: CASE EVENT DATE: 20180101
